FAERS Safety Report 11651954 (Version 1)
Quarter: 2015Q4

REPORT INFORMATION
  Report Type: Report from Study
  Country: CA (occurrence: CA)
  Receive Date: 20151022
  Receipt Date: 20151022
  Transmission Date: 20160304
  Serious: Yes (Death, Life-Threatening, Hospitalization, Other)
  Sender: FDA-Public Use
  Company Number: CA-ROCHE-1623701

PATIENT
  Age: 66 Year
  Sex: Female

DRUGS (9)
  1. RABEPRAZOLE [Concomitant]
     Active Substance: RABEPRAZOLE
  2. CANDESARTAN [Concomitant]
     Active Substance: CANDESARTAN
  3. RITUXAN [Suspect]
     Active Substance: RITUXIMAB
     Indication: RHEUMATOID ARTHRITIS
     Route: 042
     Dates: start: 20150226, end: 20150902
  4. SYNTHROID [Concomitant]
     Active Substance: LEVOTHYROXINE SODIUM
  5. ACETAMINOPHEN. [Concomitant]
     Active Substance: ACETAMINOPHEN
     Indication: PREMEDICATION
     Route: 048
     Dates: start: 20150226
  6. CELEBREX [Concomitant]
     Active Substance: CELECOXIB
  7. ENBREL [Concomitant]
     Active Substance: ETANERCEPT
     Route: 065
     Dates: end: 20141130
  8. DIPHENHYDRAMINE HCL [Concomitant]
     Active Substance: DIPHENHYDRAMINE HYDROCHLORIDE
     Indication: PREMEDICATION
     Route: 048
     Dates: start: 20150226
  9. METHYLPREDNISOLONE. [Concomitant]
     Active Substance: METHYLPREDNISOLONE
     Indication: PREMEDICATION
     Route: 042
     Dates: start: 20150226

REACTIONS (12)
  - Performance status decreased [Unknown]
  - Fatigue [Unknown]
  - Hydronephrosis [Unknown]
  - Decreased appetite [Unknown]
  - Malaise [Unknown]
  - Recurrent cancer [Unknown]
  - Arthralgia [Unknown]
  - Ill-defined disorder [Fatal]
  - Pulmonary embolism [Unknown]
  - Ascites [Unknown]
  - Leukocytosis [Unknown]
  - Anaemia [Unknown]

NARRATIVE: CASE EVENT DATE: 201507
